FAERS Safety Report 13060342 (Version 1)
Quarter: 2016Q4

REPORT INFORMATION
  Report Type: Spontaneous
  Country: US (occurrence: US)
  Receive Date: 20161223
  Receipt Date: 20161223
  Transmission Date: 20170207
  Serious: Yes (Other)
  Sender: FDA-Public Use
  Company Number: US-ALLERGAN-1681665US

PATIENT
  Age: 64 Year
  Sex: Female
  Weight: 44.81 kg

DRUGS (17)
  1. LOSARTAN POTASSIUM. [Concomitant]
     Active Substance: LOSARTAN POTASSIUM
     Dosage: 50 MG, QD
     Route: 048
     Dates: start: 20150901
  2. NIFEDIPINE. [Concomitant]
     Active Substance: NIFEDIPINE
     Dosage: UNK
     Dates: start: 20140518
  3. OXYCODONE AND ACETAMINOPHEN [Concomitant]
     Active Substance: ACETAMINOPHEN\OXYCODONE HYDROCHLORIDE
     Indication: PAIN
     Dosage: 10/325 MG; 1-2 TABLETS EVERY 4 - 6 H, PRN
     Route: 048
     Dates: start: 20150414
  4. CLONIDINE HCL [Concomitant]
     Active Substance: CLONIDINE HYDROCHLORIDE
     Dosage: UNK
     Route: 048
     Dates: start: 20150127
  5. METHOCARBAMOL. [Concomitant]
     Active Substance: METHOCARBAMOL
     Dosage: UNK
     Route: 048
     Dates: start: 20150101
  6. PRILOSEC [Concomitant]
     Active Substance: OMEPRAZOLE MAGNESIUM
     Dosage: 20 MG, BID
     Route: 048
     Dates: start: 20140714
  7. LEVOTHYROXINE SODIUM. [Concomitant]
     Active Substance: LEVOTHYROXINE SODIUM
     Dosage: 88 ?G, QD
     Route: 048
     Dates: start: 20151217
  8. OXYCODONE HYDROCHLORIDE. [Concomitant]
     Active Substance: OXYCODONE HYDROCHLORIDE
     Dosage: UNK
     Route: 048
     Dates: start: 20140929
  9. OXYCONTIN [Concomitant]
     Active Substance: OXYCODONE HYDROCHLORIDE
     Dosage: 20 MG, Q8HR
     Route: 048
     Dates: start: 20160714
  10. NORCO [Suspect]
     Active Substance: ACETAMINOPHEN\HYDROCODONE BITARTRATE
     Indication: PAIN
     Dosage: 1-2 TABLETS, Q6H, PRN
     Route: 048
     Dates: start: 20150107
  11. GABAPENTINE [Concomitant]
     Active Substance: GABAPENTIN
     Dosage: 600 MG, TID
     Route: 048
     Dates: start: 20140714
  12. NYSTATIN. [Concomitant]
     Active Substance: NYSTATIN
     Dosage: 10 ML, UP TO 5 TIMES A DAY
     Dates: start: 20150730
  13. VITAMIN D3 [Concomitant]
     Active Substance: CHOLECALCIFEROL
     Dosage: UNK
     Route: 048
     Dates: start: 20150820
  14. ACYCLOVIR. [Concomitant]
     Active Substance: ACYCLOVIR
     Dosage: 2 DF, QD
     Dates: start: 20151215
  15. ASPIRIN. [Concomitant]
     Active Substance: ASPIRIN
     Dosage: AS DIRECTED
     Route: 048
     Dates: start: 20140714
  16. CARVEDILOL. [Concomitant]
     Active Substance: CARVEDILOL
     Dosage: UNK
     Route: 048
     Dates: start: 20141007
  17. VALACYCLOVIR [Concomitant]
     Active Substance: VALACYCLOVIR HYDROCHLORIDE
     Dosage: 1 GM
     Route: 048
     Dates: start: 20151207

REACTIONS (13)
  - Large intestine polyp [Not Recovered/Not Resolved]
  - Sternal fracture [Unknown]
  - Post procedural hypothyroidism [Not Recovered/Not Resolved]
  - Hyponatraemia [Not Recovered/Not Resolved]
  - Hypercalcaemia [Not Recovered/Not Resolved]
  - Drug ineffective [Unknown]
  - Foot fracture [Unknown]
  - Endocrine disorder [Not Recovered/Not Resolved]
  - Osteopenia [Not Recovered/Not Resolved]
  - Underweight [Not Recovered/Not Resolved]
  - Thyroid cancer [Not Recovered/Not Resolved]
  - Pain [Unknown]
  - Failure to thrive [Unknown]
